FAERS Safety Report 23054852 (Version 1)
Quarter: 2023Q4

REPORT INFORMATION
  Report Type: Spontaneous
  Country: US (occurrence: None)
  Receive Date: 20231010
  Receipt Date: 20231010
  Transmission Date: 20240109
  Serious: Yes (Disabling)
  Sender: FDA-Public Use
  Company Number: None

PATIENT
  Age: 74 Year
  Sex: Female
  Weight: 63 kg

DRUGS (6)
  1. SYNTHROID [Suspect]
     Active Substance: LEVOTHYROXINE SODIUM
     Indication: Hypothyroidism
     Dosage: OTHER QUANTITY : 1 TABLET(S);?FREQUENCY : TWICE A DAY;?
     Route: 048
  2. BYSTOLIC [Concomitant]
  3. ARMOUR THYROID [Concomitant]
     Active Substance: THYROID, PORCINE
  4. Klonopin C-PAP [Concomitant]
  5. Hearing Aids [Concomitant]
  6. COENZYME Q10 [Concomitant]
     Active Substance: DIETARY SUPPLEMENT\UBIDECARENONE

REACTIONS (3)
  - Drug ineffective [None]
  - Product prescribing error [None]
  - Wheelchair user [None]

NARRATIVE: CASE EVENT DATE: 20150628
